FAERS Safety Report 9898244 (Version 2)
Quarter: 2015Q3

REPORT INFORMATION
  Report Type: Spontaneous
  Country: US (occurrence: US)
  Receive Date: 20140214
  Receipt Date: 20150810
  Transmission Date: 20151125
  Serious: No
  Sender: FDA-Public Use
  Company Number: US-GILEAD-2011-0042132

PATIENT
  Age: 39 Year
  Sex: Male

DRUGS (5)
  1. REVATIO [Concomitant]
     Active Substance: SILDENAFIL CITRATE
  2. LETAIRIS [Suspect]
     Active Substance: AMBRISENTAN
     Indication: PRODUCT USED FOR UNKNOWN INDICATION
     Route: 048
     Dates: start: 20110427
  3. FLOLAN [Concomitant]
     Active Substance: EPOPROSTENOL SODIUM
  4. VELETRI [Concomitant]
     Active Substance: EPOPROSTENOL
  5. TRACLEER [Concomitant]
     Active Substance: BOSENTAN

REACTIONS (1)
  - Dizziness [Unknown]
